FAERS Safety Report 8926803 (Version 1)
Quarter: 2012Q4

REPORT INFORMATION
  Report Type: 
  Country: US (occurrence: US)
  Receive Date: 20121127
  Receipt Date: 20121127
  Transmission Date: 20130627
  Serious: Yes (Other)
  Sender: FDA-Public Use
  Company Number: US-ELI_LILLY_AND_COMPANY-US201211004863

PATIENT
  Age: 74 Year
  Sex: Female

DRUGS (2)
  1. CYMBALTA [Suspect]
     Indication: NEUROPATHY PERIPHERAL
     Dosage: 30 mg, tid
  2. CYMBALTA [Suspect]
     Dosage: 60 mg, bid

REACTIONS (11)
  - Concussion [Unknown]
  - Fall [Unknown]
  - Back injury [Unknown]
  - Mobility decreased [Unknown]
  - Contusion [Unknown]
  - Back pain [Unknown]
  - Headache [Unknown]
  - Tooth disorder [Unknown]
  - Confusional state [Unknown]
  - Hearing impaired [Unknown]
  - Off label use [Unknown]
